FAERS Safety Report 7217380-4 (Version None)
Quarter: 2010Q4

REPORT INFORMATION
  Report Type: 
  Country: None (occurrence: None)
  Receive Date: 20101230
  Receipt Date: 20101214
  Transmission Date: 20110411
  Serious: No
  Sender: FDA-Public Use
  Company Number: 2010-01048

PATIENT
  Sex: Female

DRUGS (1)
  1. ZICAM COLD REMEDY ZAVORS [Suspect]
     Dosage: Q 3 OR 4 HRS, 3-4 DOSES
     Dates: start: 20101213, end: 20101214

REACTIONS (1)
  - AGEUSIA [None]
